FAERS Safety Report 20689234 (Version 3)
Quarter: 2022Q2

REPORT INFORMATION
  Report Type: Spontaneous
  Country: JP (occurrence: JP)
  Receive Date: 20220408
  Receipt Date: 20220624
  Transmission Date: 20220721
  Serious: No
  Sender: FDA-Public Use
  Company Number: JP-GLAXOSMITHKLINE-JP2022JPN061095

PATIENT

DRUGS (15)
  1. SOTROVIMAB [Suspect]
     Active Substance: SOTROVIMAB
     Indication: COVID-19
     Dosage: 500 MG/DAY
     Route: 042
     Dates: start: 20220402, end: 20220402
  2. CLOTRIMAZOLE [Suspect]
     Active Substance: CLOTRIMAZOLE
     Indication: Vulvovaginitis
     Dosage: 100 MG/DAY, TOPICAL
     Dates: start: 20220307, end: 20220312
  3. ESCHERICHIA COLI\HYDROCORTISONE [Suspect]
     Active Substance: ESCHERICHIA COLI\HYDROCORTISONE
     Indication: Haemorrhoids
     Dosage: TOPICAL
     Dates: start: 20211228
  4. UFENAMATE [Suspect]
     Active Substance: UFENAMATE
     Dosage: TOPICAL
     Dates: start: 20211228
  5. BETAMETHASONE DIPROPIONATE [Suspect]
     Active Substance: BETAMETHASONE DIPROPIONATE
     Dosage: TOPICAL
     Dates: start: 20211228
  6. FERRIC CITRATE ANHYDROUS [Suspect]
     Active Substance: FERRIC CITRATE ANHYDROUS
     Indication: Iron deficiency anaemia
     Dosage: 500 MG/DAY
     Route: 048
     Dates: start: 20220303, end: 20220309
  7. FLAGYL [Suspect]
     Active Substance: METRONIDAZOLE\METRONIDAZOLE HYDROCHLORIDE
     Indication: Bacterial vulvovaginitis
     Dosage: 250 MG/DAY, TOPICAL
     Dates: start: 20220307, end: 20220312
  8. CITRIC ACID MONOHYDRATE [Suspect]
     Active Substance: CITRIC ACID MONOHYDRATE
     Indication: Abdominal discomfort
     Dosage: 3.9 G/DAY
     Route: 048
     Dates: start: 20220307
  9. RITODRINE HYDROCHLORIDE [Suspect]
     Active Substance: RITODRINE HYDROCHLORIDE
     Indication: Premature labour
     Dosage: ADJUSTED AS NEEDED
     Route: 048
     Dates: start: 20220308, end: 20220415
  10. GASTER [Suspect]
     Active Substance: FAMOTIDINE
     Indication: Gastritis
     Dosage: 40 MG/DAY
     Route: 048
     Dates: start: 20220311, end: 20220414
  11. CHLORAMPHENICOL [Suspect]
     Active Substance: CHLORAMPHENICOL
     Indication: Bacterial vulvovaginitis
     Dosage: 100 MG/DAY, TOPICAL
     Dates: start: 20220317, end: 20220324
  12. CALONAL [Suspect]
     Active Substance: ACETAMINOPHEN
     Indication: Pyrexia
     Dosage: 400 MG/DOSE, WHEN PAIN AND PYREXIA OCCURRED
     Route: 048
     Dates: start: 20220331
  13. CALONAL [Suspect]
     Active Substance: ACETAMINOPHEN
     Indication: Pain
  14. DEXTROMETHORPHAN HYDROBROMIDE [Suspect]
     Active Substance: DEXTROMETHORPHAN HYDROBROMIDE
     Indication: Cough
     Dosage: 90 MG/DAY
     Route: 048
     Dates: start: 20220402
  15. CARBOCYSTEINE [Suspect]
     Active Substance: CARBOCYSTEINE
     Indication: Productive cough
     Dosage: 1500 MG/DAY
     Route: 048
     Dates: start: 20220402

REACTIONS (4)
  - Caesarean section [Unknown]
  - Premature delivery [Unknown]
  - Epistaxis [Recovered/Resolved]
  - Exposure during pregnancy [Unknown]

NARRATIVE: CASE EVENT DATE: 20220403
